FAERS Safety Report 6097210-7 (Version None)
Quarter: 2009Q1

REPORT INFORMATION
  Report Type: 
  Country: None (occurrence: None)
  Receive Date: 20090227
  Receipt Date: 20090216
  Transmission Date: 20090719
  Serious: Yes (Hospitalization)
  Sender: FDA-Public Use
  Company Number: B0555336A

PATIENT
  Age: 52 Year
  Sex: Male
  Weight: 56 kg

DRUGS (9)
  1. ARIXTRA [Suspect]
     Dosage: 2.5MG PER DAY
     Route: 058
     Dates: start: 20080926, end: 20081006
  2. NEXIUM [Concomitant]
     Route: 048
  3. DOLIPRANE [Concomitant]
     Dosage: 1G PER DAY
     Route: 065
  4. FORLAX [Concomitant]
     Route: 065
  5. MYOLASTAN [Concomitant]
     Route: 065
  6. TARDYFERON [Concomitant]
     Route: 065
  7. SPECIAFOLDINE [Concomitant]
     Route: 065
  8. TOPALGIC (FRANCE) [Concomitant]
     Route: 048
  9. VOLTARENE [Concomitant]
     Route: 048

REACTIONS (3)
  - CAUDA EQUINA SYNDROME [None]
  - FALL [None]
  - HAEMATOMA [None]
